FAERS Safety Report 4354601-X (Version None)
Quarter: 2004Q2

REPORT INFORMATION
  Report Type: 
  Country: None (occurrence: None)
  Receive Date: 20040503
  Receipt Date: 20040421
  Transmission Date: 20050107
  Serious: Yes (Other)
  Sender: FDA-Public Use
  Company Number: US-JNJFOC-20040404973

PATIENT
  Age: 51 Year
  Sex: Male
  Weight: 106.5953 kg

DRUGS (4)
  1. TOPAMAX [Suspect]
     Indication: BINGE EATING
     Dosage: 200 MG, IN 1 DAY, ORAL
     Route: 048
     Dates: start: 20030201, end: 20040101
  2. PAXIL [Concomitant]
  3. WELLBUTRIN [Concomitant]
  4. ZOLOFT [Concomitant]

REACTIONS (2)
  - HALO VISION [None]
  - RETINAL DISORDER [None]
